FAERS Safety Report 19587705 (Version 1)
Quarter: 2021Q3

REPORT INFORMATION
  Report Type: Spontaneous
  Country: NL (occurrence: NL)
  Receive Date: 20210721
  Receipt Date: 20210721
  Transmission Date: 20211014
  Serious: Yes (Hospitalization)
  Sender: FDA-Public Use
  Company Number: NL-TILLOMED LABORATORIES LTD.-2021-EPL-002367

PATIENT
  Age: 72 Year
  Sex: Male
  Weight: 75 kg

DRUGS (7)
  1. LEFLUNOMIDE. [Suspect]
     Active Substance: LEFLUNOMIDE
     Indication: RHEUMATOID ARTHRITIS
     Dosage: 20 MILLIGRAM, 1 DOSE PER 1 D,1 DD 1 TABLET
     Dates: start: 201805, end: 20210222
  2. OMEPRAZOL [Concomitant]
     Active Substance: OMEPRAZOLE
     Dosage: 20 MILLIGRAM, 1 DOSE PER 1 D,1 DD 20 MG
  3. SIMVASTATINE [Concomitant]
     Active Substance: SIMVASTATIN
     Dosage: 1 MILLIGRAM, 1 DOSE PER 1 D,1 DD 1 MG
  4. MESALAZINE [Concomitant]
     Active Substance: MESALAMINE
     Dosage: 1 GRAM, 1 DOSE PER 1 D,4 DD 1 GR
  5. CARBASALAATCALCIUM [Concomitant]
     Active Substance: CARBASPIRIN CALCIUM
     Dosage: 100 MILLIGRAM, 1 DOSE PER 1 D,1 DD 100 MG
  6. PREDNISOLON [Concomitant]
     Active Substance: PREDNISOLONE
     Dosage: TABLET, 5 MG (MILLIGRAM)
  7. AMLODIPINE [Concomitant]
     Active Substance: AMLODIPINE BESYLATE
     Dosage: 5 MILLIGRAM, 1 DOSE PER 1 D,1 DD 5 MG

REACTIONS (1)
  - Lung abscess [Recovered/Resolved]

NARRATIVE: CASE EVENT DATE: 20201116
